FAERS Safety Report 11878217 (Version 1)
Quarter: 2015Q4

REPORT INFORMATION
  Report Type: Spontaneous
  Country: GB (occurrence: GB)
  Receive Date: 20151230
  Receipt Date: 20151230
  Transmission Date: 20160305
  Serious: Yes (Other)
  Sender: FDA-Public Use
  Company Number: GB-TEVA-620430ACC

PATIENT
  Age: 74 Year
  Sex: Female

DRUGS (1)
  1. AMITRIPTYLINE [Suspect]
     Active Substance: AMITRIPTYLINE
     Indication: SCIATICA
     Dosage: 1 DOSAGE FORMS DAILY; 1 DF, DAILY
     Route: 065
     Dates: start: 20151013, end: 20151014

REACTIONS (7)
  - Insomnia [Unknown]
  - Vomiting [Unknown]
  - Suicidal ideation [Unknown]
  - Decreased appetite [Unknown]
  - Off label use [Unknown]
  - Mobility decreased [Recovering/Resolving]
  - Pain [Unknown]

NARRATIVE: CASE EVENT DATE: 20151013
